FAERS Safety Report 19667051 (Version 1)
Quarter: 2021Q3

REPORT INFORMATION
  Report Type: Spontaneous
  Country: US (occurrence: US)
  Receive Date: 20210806
  Receipt Date: 20210806
  Transmission Date: 20211014
  Serious: No
  Sender: FDA-Public Use
  Company Number: US-KVK-TECH, INC-20210200018

PATIENT
  Age: 70 Year
  Sex: Female
  Weight: 71.66 kg

DRUGS (1)
  1. BENZPHETAMINE HYDROCHLORIDE TABLETS [Suspect]
     Active Substance: BENZPHETAMINE HYDROCHLORIDE
     Indication: APPETITE DISORDER
     Dosage: 50 MILLIGRAM
     Route: 048
     Dates: start: 20210125, end: 20210128

REACTIONS (2)
  - Pruritus [Recovered/Resolved]
  - Hypersensitivity [Recovered/Resolved]

NARRATIVE: CASE EVENT DATE: 20210125
